FAERS Safety Report 9129763 (Version 2)
Quarter: 2013Q2

REPORT INFORMATION
  Report Type: Spontaneous
  Country: FR (occurrence: FR)
  Receive Date: 20130228
  Receipt Date: 20130402
  Transmission Date: 20140414
  Serious: Yes (Other)
  Sender: FDA-Public Use
  Company Number: FR-TEVA-388867USA

PATIENT
  Sex: 0

DRUGS (3)
  1. TREANDA [Suspect]
     Indication: HODGKIN^S DISEASE
  2. RITUXIMAB [Concomitant]
  3. VINORELBINE [Concomitant]

REACTIONS (2)
  - Acute myeloid leukaemia [Unknown]
  - Off label use [Unknown]
